FAERS Safety Report 13073520 (Version 1)
Quarter: 2016Q4

REPORT INFORMATION
  Report Type: Spontaneous
  Country: US (occurrence: US)
  Receive Date: 20161229
  Receipt Date: 20161229
  Transmission Date: 20170207
  Serious: No
  Sender: FDA-Public Use
  Company Number: US-GLAXOSMITHKLINE-US2016GSK192573

PATIENT
  Sex: Male

DRUGS (1)
  1. CARVEDILOL TABLET [Suspect]
     Active Substance: CARVEDILOL
     Indication: CONGESTIVE CARDIOMYOPATHY

REACTIONS (3)
  - Feeling abnormal [Unknown]
  - Asthenia [Unknown]
  - Dizziness [Unknown]
